FAERS Safety Report 9489372 (Version 1)
Quarter: 2013Q3

REPORT INFORMATION
  Report Type: Spontaneous
  Country: US (occurrence: US)
  Receive Date: 20130829
  Receipt Date: 20130829
  Transmission Date: 20140515
  Serious: Yes (Death, Other)
  Sender: FDA-Public Use
  Company Number: PHHY2013US092766

PATIENT
  Age: 56 Year
  Sex: Male

DRUGS (3)
  1. CISPLATIN [Suspect]
     Indication: SQUAMOUS CELL CARCINOMA
  2. DOCETAXEL [Suspect]
     Indication: SQUAMOUS CELL CARCINOMA
  3. 5-FLUOROURACIL [Suspect]
     Indication: SQUAMOUS CELL CARCINOMA

REACTIONS (13)
  - Death [Fatal]
  - Histiocytosis haematophagic [Unknown]
  - Acute respiratory distress syndrome [Unknown]
  - Pyrexia [Unknown]
  - Lethargy [Unknown]
  - Pancytopenia [Unknown]
  - Metabolic acidosis [Unknown]
  - Lactic acidosis [Unknown]
  - General physical health deterioration [Unknown]
  - Shock [Unknown]
  - Multi-organ failure [Unknown]
  - Altered state of consciousness [Unknown]
  - Abdominal tenderness [Unknown]
